FAERS Safety Report 12970436 (Version 1)
Quarter: 2016Q4

REPORT INFORMATION
  Report Type: Spontaneous
  Country: US (occurrence: US)
  Receive Date: 20161123
  Receipt Date: 20161123
  Transmission Date: 20170207
  Serious: Yes (Other)
  Sender: FDA-Public Use
  Company Number: US-LUNDBECK-DKLU2022898

PATIENT
  Sex: Female

DRUGS (9)
  1. DEPAKOTE [Concomitant]
     Active Substance: DIVALPROEX SODIUM
     Indication: PRODUCT USED FOR UNKNOWN INDICATION
     Route: 065
  2. BANZEL [Concomitant]
     Active Substance: RUFINAMIDE
     Route: 065
  3. BANZEL [Concomitant]
     Active Substance: RUFINAMIDE
     Route: 065
  4. BANZEL [Concomitant]
     Active Substance: RUFINAMIDE
     Route: 065
  5. ONFI [Suspect]
     Active Substance: CLOBAZAM
     Indication: EPILEPSY
     Route: 065
  6. ONFI [Suspect]
     Active Substance: CLOBAZAM
     Indication: TUBEROUS SCLEROSIS
     Route: 065
  7. ONFI [Suspect]
     Active Substance: CLOBAZAM
     Route: 065
  8. CBD OIL (MEDICAL MARIJUANA) [Concomitant]
     Indication: PRODUCT USED FOR UNKNOWN INDICATION
     Route: 065
  9. BANZEL [Concomitant]
     Active Substance: RUFINAMIDE
     Indication: PRODUCT USED FOR UNKNOWN INDICATION
     Route: 065

REACTIONS (4)
  - Off label use [Unknown]
  - Seizure [Unknown]
  - Insomnia [Unknown]
  - Skin lesion [Unknown]
